FAERS Safety Report 23629171 (Version 1)
Quarter: 2024Q1

REPORT INFORMATION
  Report Type: Spontaneous
  Country: US (occurrence: US)
  Receive Date: 20240313
  Receipt Date: 20240313
  Transmission Date: 20240409
  Serious: No
  Sender: FDA-Public Use
  Company Number: US-AADI BIOSCIENCE, INC-24ABI000006

PATIENT

DRUGS (4)
  1. FYARRO [Suspect]
     Active Substance: SIROLIMUS
     Indication: Perivascular epithelioid cell tumour
     Dosage: AS DIRECTED (ON DAY 1 AND DAY 8 OF EACH 21-DAY CYCLE)
     Route: 042
     Dates: start: 20240109
  2. TYLENOL [Concomitant]
     Active Substance: ACETAMINOPHEN
     Indication: Product used for unknown indication
     Dosage: UNK, PRN (AS NEEDED)
     Route: 048
  3. PERCOCET [Concomitant]
     Active Substance: ACETAMINOPHEN\OXYCODONE HYDROCHLORIDE
     Indication: Product used for unknown indication
     Dosage: UNK, PRN (AS NEEDED)
     Route: 048
  4. EAR DRP [Concomitant]
     Indication: Pain
     Dosage: UNK, PRN (AS NEEDED)
     Route: 050

REACTIONS (8)
  - Ear pain [Recovered/Resolved]
  - Oesophageal ulcer [Recovering/Resolving]
  - Nausea [Unknown]
  - Pain [Unknown]
  - Fatigue [Unknown]
  - Mouth ulceration [Unknown]
  - Rash papular [Not Recovered/Not Resolved]
  - Dermatitis acneiform [Not Recovered/Not Resolved]

NARRATIVE: CASE EVENT DATE: 20240109
